FAERS Safety Report 10180796 (Version 1)
Quarter: 2014Q2

REPORT INFORMATION
  Report Type: Spontaneous
  Country: US (occurrence: US)
  Receive Date: 20140519
  Receipt Date: 20140519
  Transmission Date: 20141212
  Serious: No
  Sender: FDA-Public Use
  Company Number: US-AMGEN INC.-USASP2014010782

PATIENT
  Age: 90 Year
  Sex: Female

DRUGS (13)
  1. PROLIA [Suspect]
     Indication: OSTEOPENIA
     Dosage: 60 MG, UNK
     Route: 065
     Dates: start: 201401
  2. ALBUTEROL                          /00139501/ [Concomitant]
  3. ASPIRIN [Concomitant]
     Dosage: 81 MG, UNK
  4. VITAMIN B [Concomitant]
  5. CRANBERRY                          /01512301/ [Concomitant]
  6. CALCIUM CITRATE [Concomitant]
  7. FEVERFEW                           /01723001/ [Concomitant]
  8. COMBIVENT [Concomitant]
  9. ATIVAN [Concomitant]
  10. BENICAR [Concomitant]
  11. OMEGA 3 FISH OILS [Concomitant]
  12. PRILOSEC                           /00661201/ [Concomitant]
  13. PERI-COLACE [Concomitant]

REACTIONS (1)
  - Insomnia [Unknown]
